FAERS Safety Report 14946250 (Version 1)
Quarter: 2018Q2

REPORT INFORMATION
  Report Type: Spontaneous
  Country: US (occurrence: US)
  Receive Date: 20180529
  Receipt Date: 20180529
  Transmission Date: 20180711
  Serious: No
  Sender: FDA-Public Use
  Company Number: US-SA-2018SA142578

PATIENT
  Sex: Female

DRUGS (1)
  1. PRALUENT [Suspect]
     Active Substance: ALIROCUMAB
     Dosage: 75 MG
     Route: 058
     Dates: start: 201803

REACTIONS (3)
  - Nasal discomfort [Not Recovered/Not Resolved]
  - Stomatitis [Unknown]
  - Scar [Unknown]

NARRATIVE: CASE EVENT DATE: 2018
